FAERS Safety Report 7160573-5 (Version None)
Quarter: 2010Q4

REPORT INFORMATION
  Report Type: 
  Country: None (occurrence: None)
  Receive Date: 20101214
  Receipt Date: 20091127
  Transmission Date: 20110411
  Serious: No
  Sender: FDA-Public Use
  Company Number: US-AMGEN-KDL377208

PATIENT

DRUGS (16)
  1. ENBREL [Suspect]
     Indication: PRODUCT USED FOR UNKNOWN INDICATION
     Dosage: 50 MG, QWK
     Route: 058
  2. METHOTREXATE [Concomitant]
     Dosage: 2.5 MG, UNK
  3. AVANDIA [Concomitant]
     Dosage: 2 MG, UNK
  4. ATORVASTATIN CALCIUM [Concomitant]
     Dosage: 20 MG, UNK
  5. DIPHENHYDRAMINE HYDROCHLORIDE [Concomitant]
     Dosage: 25 MG, UNK
  6. METFORMIN [Concomitant]
     Dosage: 500 MG, UNK
  7. FOLIC ACID [Concomitant]
     Dosage: 1 MG, UNK
  8. GABAPENTIN [Concomitant]
     Dosage: 100 MG, UNK
  9. CALCIUM CITRATE [Concomitant]
     Dosage: 400 IU/KG, UNK
  10. OMEPRAZOLE [Concomitant]
     Dosage: 20 MG, UNK
  11. VITAMIN B COMPLEX [Concomitant]
  12. NAPROXEN SODIUM [Concomitant]
     Dosage: 220 MG, UNK
  13. LOVAZA [Concomitant]
  14. ERGOCALCIFEROL [Concomitant]
  15. TOCOPHEROL CONCENTRATE CAP [Concomitant]
  16. FIBRE, DIETARY [Concomitant]

REACTIONS (2)
  - ALOPECIA [None]
  - HAIR DISORDER [None]
